FAERS Safety Report 16397010 (Version 1)
Quarter: 2019Q2

REPORT INFORMATION
  Report Type: Spontaneous
  Country: US (occurrence: US)
  Receive Date: 20190606
  Receipt Date: 20190606
  Transmission Date: 20190711
  Serious: No
  Sender: FDA-Public Use
  Company Number: US-009507513-1906USA000646

PATIENT
  Sex: Male

DRUGS (1)
  1. PROPECIA [Suspect]
     Active Substance: FINASTERIDE
     Indication: ALOPECIA
     Dosage: DOCTOR TOLD ME TO TAKE HALF A TABLET
     Route: 048
     Dates: start: 1999

REACTIONS (3)
  - Erectile dysfunction [Recovered/Resolved]
  - Product prescribing error [Unknown]
  - Alopecia [Unknown]

NARRATIVE: CASE EVENT DATE: 1999
